FAERS Safety Report 9635870 (Version 1)
Quarter: 2013Q4

REPORT INFORMATION
  Report Type: Spontaneous
  Country: US (occurrence: US)
  Receive Date: 20131021
  Receipt Date: 20131021
  Transmission Date: 20140711
  Serious: No
  Sender: FDA-Public Use
  Company Number: US-PURDUE-USA-2013-0103286

PATIENT
  Sex: Female

DRUGS (3)
  1. BUTRANS [Suspect]
     Indication: PAIN
     Dosage: 20 MCG/HR, WEEKLY
     Route: 062
     Dates: start: 201201, end: 201202
  2. BUTRANS [Suspect]
     Dosage: 10 MCG/HR, WEEKLY
     Route: 062
     Dates: start: 201202
  3. VICOPROFEN [Concomitant]
     Indication: BREAKTHROUGH PAIN
     Dosage: 1 TABLET (10/200 MG), Q4H PRN
     Route: 048
     Dates: start: 2000

REACTIONS (8)
  - Application site discolouration [Unknown]
  - Drug effect increased [Recovered/Resolved]
  - Drug administered at inappropriate site [Unknown]
  - Drug effect decreased [Not Recovered/Not Resolved]
  - Application site pruritus [Not Recovered/Not Resolved]
  - Application site urticaria [Not Recovered/Not Resolved]
  - Product adhesion issue [Unknown]
  - Application site erythema [Not Recovered/Not Resolved]
